FAERS Safety Report 6211864-3 (Version None)
Quarter: 2009Q2

REPORT INFORMATION
  Report Type: 
  Country: None (occurrence: None)
  Receive Date: 20090528
  Receipt Date: 20090518
  Transmission Date: 20091009
  Serious: Yes (Other)
  Sender: FDA-Public Use
  Company Number: 273862

PATIENT
  Age: 68 Year
  Sex: Male
  Weight: 63 kg

DRUGS (1)
  1. BUPIVACAINE [Suspect]
     Indication: SPINAL ANAESTHESIA
     Dosage: 10 MG, INTRASPINAL
     Route: 024

REACTIONS (7)
  - ANAEMIA POSTOPERATIVE [None]
  - BURNING SENSATION [None]
  - MOVEMENT DISORDER [None]
  - PARAESTHESIA [None]
  - PHANTOM PAIN [None]
  - POST PROCEDURAL HAEMORRHAGE [None]
  - SENSORY LOSS [None]
